FAERS Safety Report 8223087-7 (Version None)
Quarter: 2012Q1

REPORT INFORMATION
  Report Type: 
  Country: None (occurrence: None)
  Receive Date: 20120321
  Receipt Date: 20120309
  Transmission Date: 20120608
  Serious: Yes (Hospitalization)
  Sender: FDA-Public Use
  Company Number: US-BIOGENIDEC-2011BI030844

PATIENT
  Age: 68 Year
  Sex: Male

DRUGS (12)
  1. STEROID [Concomitant]
     Indication: BACK PAIN
     Route: 008
  2. PERCOCET [Concomitant]
  3. CYMBALTA [Concomitant]
  4. OXYCONTIN [Concomitant]
  5. METFORMIN HCL [Concomitant]
  6. TYSABRI [Suspect]
     Indication: MULTIPLE SCLEROSIS
     Route: 042
     Dates: start: 20090904
  7. MEDICATION (NOS) [Concomitant]
     Route: 048
  8. FENTANYL-100 [Concomitant]
     Indication: BACK PAIN
     Route: 037
  9. PROPHYLAXIS ANTIBIOTICS [Concomitant]
     Indication: CATHETER PLACEMENT
  10. OXYBUTYNIN [Concomitant]
     Route: 048
  11. KLONOPIN [Concomitant]
     Indication: MUSCLE SPASMS
  12. PROVIGIL [Concomitant]

REACTIONS (7)
  - MOTOR DYSFUNCTION [None]
  - UROSEPSIS [None]
  - DEVICE MALFUNCTION [None]
  - FALL [None]
  - URINARY TRACT INFECTION [None]
  - NEPHROLITHIASIS [None]
  - PNEUMONIA ASPIRATION [None]
